FAERS Safety Report 9979115 (Version 1)
Quarter: 2014Q1

REPORT INFORMATION
  Report Type: Report from Study
  Country: US (occurrence: US)
  Receive Date: 20140306
  Receipt Date: 20140306
  Transmission Date: 20141002
  Serious: No
  Sender: FDA-Public Use
  Company Number: US-ABBVIE-13P-163-1169285-00

PATIENT
  Age: 48 Year
  Sex: Male
  Weight: 104.42 kg

DRUGS (2)
  1. HUMIRA [Suspect]
     Indication: RHEUMATOID ARTHRITIS
     Dates: end: 201310
  2. AZATHIOPRINE [Concomitant]
     Indication: RHEUMATOID ARTHRITIS
     Dates: start: 201309

REACTIONS (3)
  - Joint stiffness [Not Recovered/Not Resolved]
  - Inappropriate schedule of drug administration [Not Recovered/Not Resolved]
  - Arthralgia [Not Recovered/Not Resolved]
